FAERS Safety Report 4804480-9 (Version None)
Quarter: 2005Q4

REPORT INFORMATION
  Report Type: 
  Country: None (occurrence: None)
  Receive Date: 20051017
  Receipt Date: 20051010
  Transmission Date: 20060501
  Serious: Yes (Other)
  Sender: FDA-Public Use
  Company Number: 2005136702

PATIENT
  Age: 65 Year
  Sex: Male
  Weight: 80 kg

DRUGS (4)
  1. ATORVASTATIN CALCIUM [Suspect]
     Indication: ILL-DEFINED DISORDER
     Dosage: 40 MG (DAILY)
     Dates: start: 20000101, end: 20050901
  2. METOPROLOL TARTRATE [Concomitant]
  3. RAMIPRIL [Concomitant]
  4. PLAVIX [Concomitant]

REACTIONS (1)
  - MUSCLE RUPTURE [None]
